FAERS Safety Report 25614152 (Version 2)
Quarter: 2025Q3

REPORT INFORMATION
  Report Type: Spontaneous
  Country: JP (occurrence: JP)
  Receive Date: 20250728
  Receipt Date: 20250901
  Transmission Date: 20251021
  Serious: Yes (Hospitalization, Other)
  Sender: MALLINCKRODT
  Company Number: JP-MALLINCKRODT-MNK202504394

PATIENT
  Age: 6 Decade
  Sex: Female

DRUGS (4)
  1. NITRIC OXIDE [Suspect]
     Active Substance: NITRIC OXIDE
     Indication: Pulmonary hypertension
     Route: 055
  2. NITRIC OXIDE [Suspect]
     Active Substance: NITRIC OXIDE
     Indication: Cardiac operation
  3. NITRIC OXIDE [Suspect]
     Active Substance: NITRIC OXIDE
     Route: 055
  4. NITRIC OXIDE [Suspect]
     Active Substance: NITRIC OXIDE
     Route: 055

REACTIONS (3)
  - Circulatory collapse [Unknown]
  - Pulmonary hypertension [Unknown]
  - Rebound effect [Unknown]
